FAERS Safety Report 23713879 (Version 2)
Quarter: 2024Q2

REPORT INFORMATION
  Report Type: Spontaneous
  Country: US (occurrence: US)
  Receive Date: 20240405
  Receipt Date: 20240425
  Transmission Date: 20240715
  Serious: No
  Sender: FDA-Public Use
  Company Number: US-INCYTE CORPORATION-2024IN003368

PATIENT

DRUGS (2)
  1. OPZELURA [Suspect]
     Active Substance: RUXOLITINIB PHOSPHATE
     Dosage: UNK
     Route: 065
  2. OPZELURA [Suspect]
     Active Substance: RUXOLITINIB PHOSPHATE
     Dosage: UNK
     Route: 061

REACTIONS (1)
  - Exposure via breast milk [Unknown]
